FAERS Safety Report 5338991-7 (Version None)
Quarter: 2007Q2

REPORT INFORMATION
  Report Type: 
  Country: None (occurrence: None)
  Receive Date: 20070530
  Receipt Date: 20070518
  Transmission Date: 20071010
  Serious: Yes (Hospitalization)
  Sender: FDA-Public Use
  Company Number: US-SANOFI-SYNTHELABO-A03200607162

PATIENT
  Sex: Female

DRUGS (16)
  1. CYMBALTA [Concomitant]
     Dosage: UNK
     Route: 048
  2. GLUCOSAMINE [Concomitant]
     Dosage: UNK
     Route: 048
  3. CALCIUM CHLORIDE [Concomitant]
     Dosage: UNK
     Route: 048
  4. MULTIVITAMIN [Concomitant]
     Dosage: UNK
     Route: 048
  5. BENICAR [Concomitant]
     Dosage: UNK
     Route: 048
  6. AMBIEN [Suspect]
     Indication: INSOMNIA
     Route: 048
     Dates: start: 20060506, end: 20060506
  7. GINKO [Concomitant]
     Route: 048
  8. IBUPROFEN [Concomitant]
     Route: 048
  9. FOSAMAX [Concomitant]
     Route: 048
  10. DIOVAN [Concomitant]
     Route: 048
  11. VICODIN [Suspect]
     Dosage: UNK
     Route: 048
  12. LUNESTA [Concomitant]
     Route: 048
  13. CYCLOBENZAPRINE HCL [Concomitant]
     Route: 048
  14. PROPOXYPHENE HCL AND ACETAMINOPHEN [Concomitant]
     Dosage: 100/650
     Route: 048
  15. PROCHLORPERAZINE [Concomitant]
     Route: 048
  16. NAPROXEN [Concomitant]
     Route: 048

REACTIONS (6)
  - AMNESIA [None]
  - ARTHRALGIA [None]
  - FALL [None]
  - MENISCUS LESION [None]
  - PATELLA FRACTURE [None]
  - SLEEP WALKING [None]
